FAERS Safety Report 6750801-X (Version None)
Quarter: 2010Q2

REPORT INFORMATION
  Report Type: 
  Country: None (occurrence: None)
  Receive Date: 20100602
  Receipt Date: 20100520
  Transmission Date: 20101027
  Serious: Yes (Hospitalization)
  Sender: FDA-Public Use
  Company Number: US-WYE-H15238810

PATIENT
  Sex: Male
  Weight: 91.25 kg

DRUGS (14)
  1. PRISTIQ [Suspect]
     Indication: DEPRESSION
     Route: 048
     Dates: start: 20091201, end: 20100501
  2. PRISTIQ [Suspect]
     Route: 048
     Dates: start: 20100501
  3. LYRICA [Concomitant]
  4. LOVAZA [Concomitant]
  5. METFORMIN HCL [Concomitant]
     Indication: DIABETES MELLITUS
  6. JANUVIA [Concomitant]
     Indication: DIABETES MELLITUS
  7. LORTAB [Concomitant]
     Dosage: 5/500 FREQUENCY UNKNOWN
  8. CABERGOLINE [Concomitant]
     Indication: PITUITARY TUMOUR
     Dosage: UNKNOWN
  9. VITAMIN D [Concomitant]
     Dosage: 50000 IU, FREQUENCY UNKNOWN
  10. LUNESTA [Concomitant]
     Indication: INSOMNIA
  11. ABILIFY [Concomitant]
  12. CLONAZEPAM [Concomitant]
     Dosage: 0.5 MG FREQUENCY UNKNOWN
  13. NEXIUM [Concomitant]
     Indication: GASTRITIS
  14. HYDROCODONE BITARTRATE + ACETAMINOPHEN [Concomitant]
     Dosage: 5/325 4 TIMES DAILY

REACTIONS (5)
  - DEPRESSION [None]
  - DRUG ADMINISTRATION ERROR [None]
  - MEDICATION RESIDUE [None]
  - PROSTATITIS [None]
  - SOMNOLENCE [None]
